FAERS Safety Report 18524212 (Version 2)
Quarter: 2020Q4

REPORT INFORMATION
  Report Type: Spontaneous
  Country: MY (occurrence: MY)
  Receive Date: 20201119
  Receipt Date: 20201211
  Transmission Date: 20210114
  Serious: Yes (Other)
  Sender: FDA-Public Use
  Company Number: MY-BAUSCH-BL-2020-032774

PATIENT
  Age: 67 Year
  Sex: Male
  Weight: 41.5 kg

DRUGS (9)
  1. PRAZOSIN. [Interacting]
     Active Substance: PRAZOSIN
     Indication: ESSENTIAL HYPERTENSION
     Route: 065
     Dates: start: 2019, end: 201910
  2. METHYLDOPA. [Interacting]
     Active Substance: METHYLDOPA
     Indication: ESSENTIAL HYPERTENSION
     Route: 065
     Dates: start: 20190523, end: 20191029
  3. METOPROLOL. [Interacting]
     Active Substance: METOPROLOL
     Indication: ESSENTIAL HYPERTENSION
     Route: 065
     Dates: start: 20190507, end: 20190909
  4. AKURIT-4 [Interacting]
     Active Substance: ETHAMBUTOL HYDROCHLORIDE\ISONIAZID\PYRAZINAMIDE\RIFAMYCIN
     Indication: PULMONARY TUBERCULOSIS
     Route: 065
     Dates: start: 20190408, end: 201910
  5. PYRIDOXINE [Interacting]
     Active Substance: PYRIDOXINE
     Indication: PULMONARY TUBERCULOSIS
     Route: 065
     Dates: start: 20190408, end: 201910
  6. FELODIPINE. [Interacting]
     Active Substance: FELODIPINE
     Indication: ESSENTIAL HYPERTENSION
     Dosage: STOPPED IN EARLY NOV/2019
     Route: 065
     Dates: start: 2019, end: 201911
  7. ENALAPRIL [Suspect]
     Active Substance: ENALAPRIL
     Indication: ESSENTIAL HYPERTENSION
     Route: 065
     Dates: start: 20190604, end: 20191115
  8. SPIRONOLACTONE. [Interacting]
     Active Substance: SPIRONOLACTONE
     Indication: DIURETIC THERAPY
     Route: 065
     Dates: start: 2019, end: 201910
  9. AMLODIPINE [Interacting]
     Active Substance: AMLODIPINE BESYLATE
     Indication: ESSENTIAL HYPERTENSION
     Route: 065
     Dates: start: 20190421, end: 20190507

REACTIONS (2)
  - Drug interaction [Unknown]
  - Hypertension [Recovered/Resolved]

NARRATIVE: CASE EVENT DATE: 201904
